FAERS Safety Report 20750072 (Version 1)
Quarter: 2022Q2

REPORT INFORMATION
  Report Type: Spontaneous
  Country: CN (occurrence: CN)
  Receive Date: 20220426
  Receipt Date: 20220426
  Transmission Date: 20220721
  Serious: Yes (Hospitalization)
  Sender: FDA-Public Use
  Company Number: CN-DSJP-DSJ-2022-114375

PATIENT
  Age: 59 Year
  Sex: Male

DRUGS (2)
  1. EDOXABAN [Suspect]
     Active Substance: EDOXABAN
     Indication: Angina unstable
     Dosage: 30 MG, DAILY
     Route: 048
     Dates: start: 20220321, end: 20220406
  2. TICAGRELOR [Suspect]
     Active Substance: TICAGRELOR
     Indication: Angina unstable
     Dosage: 180 MG, DAILY
     Route: 048
     Dates: start: 20220321, end: 20220419

REACTIONS (8)
  - Lower gastrointestinal haemorrhage [Recovering/Resolving]
  - Chest pain [Unknown]
  - Melaena [Recovered/Resolved]
  - Palpitations [Unknown]
  - Chest discomfort [Unknown]
  - Haematochezia [Recovered/Resolved]
  - Haemoglobin decreased [Recovered/Resolved]
  - Off label use [Unknown]

NARRATIVE: CASE EVENT DATE: 20220405
